FAERS Safety Report 8257139-2 (Version None)
Quarter: 2012Q1

REPORT INFORMATION
  Report Type: 
  Country: None (occurrence: None)
  Receive Date: 20120322
  Receipt Date: 20100215
  Transmission Date: 20120608
  Serious: Yes (Death)
  Sender: FDA-Public Use
  Company Number: UTC-015721

PATIENT
  Age: 83 Year
  Sex: Male

DRUGS (10)
  1. MULTIVITAMIN [Concomitant]
  2. POTASSIUM CHLORIDE [Concomitant]
  3. TYVASO [Suspect]
     Indication: PULMONARY ARTERIAL HYPERTENSION
     Dosage: 216 MCG (54 MCG, 4 IN 1 D), INHALATION
     Route: 055
     Dates: start: 20110525
  4. LASIX [Concomitant]
  5. PROBIOTIC (LACTOBACILLUS REUTERI) [Concomitant]
  6. PRIMIDONE [Concomitant]
  7. REVATIO [Concomitant]
  8. LETAIRIS [Concomitant]
  9. PRILOSEC [Concomitant]
  10. ASPIRIN [Concomitant]

REACTIONS (1)
  - PULMONARY ARTERIAL HYPERTENSION [None]
